FAERS Safety Report 13420340 (Version 1)
Quarter: 2017Q2

REPORT INFORMATION
  Report Type: Spontaneous
  Country: US (occurrence: US)
  Receive Date: 20170407
  Receipt Date: 20170407
  Transmission Date: 20170830
  Serious: Yes (Hospitalization, Other)
  Sender: FDA-Public Use
  Company Number: PHEH2017US009757

PATIENT
  Sex: Female

DRUGS (5)
  1. AMIODARONE HYDROCHLORIDE. [Suspect]
     Active Substance: AMIODARONE HYDROCHLORIDE
     Indication: ATRIAL FIBRILLATION
     Route: 065
  2. AMIODARONE HYDROCHLORIDE. [Suspect]
     Active Substance: AMIODARONE HYDROCHLORIDE
     Indication: ATRIAL FIBRILLATION
     Dosage: 200 MG, UNK
     Route: 048
     Dates: end: 201303
  3. AMIODARONE TEVA [Suspect]
     Active Substance: AMIODARONE
     Indication: ATRIAL FIBRILLATION
     Route: 065
  4. AMIODARONE HYDROCHLORIDE. [Suspect]
     Active Substance: AMIODARONE HYDROCHLORIDE
     Dosage: UNK
     Route: 048
     Dates: start: 201308
  5. AMIODARONE ZYDUS [Suspect]
     Active Substance: AMIODARONE
     Indication: ATRIAL FIBRILLATION
     Route: 065

REACTIONS (28)
  - Respiratory failure [Unknown]
  - Vascular calcification [Unknown]
  - Pulmonary fibrosis [Unknown]
  - Wheezing [Unknown]
  - Pneumonitis [Unknown]
  - Keratopathy [Unknown]
  - Visual impairment [Unknown]
  - Decreased activity [Not Recovered/Not Resolved]
  - Renal failure [Unknown]
  - Corneal dystrophy [Unknown]
  - Fatigue [Not Recovered/Not Resolved]
  - Restlessness [Unknown]
  - Irritability [Unknown]
  - Weight increased [Unknown]
  - Alopecia [Not Recovered/Not Resolved]
  - Asthenia [Unknown]
  - Dyspnoea [Not Recovered/Not Resolved]
  - Cardiomegaly [Unknown]
  - Product use in unapproved indication [Unknown]
  - Cataract [Unknown]
  - Contusion [Not Recovered/Not Resolved]
  - Cough [Unknown]
  - Depression [Unknown]
  - Disturbance in attention [Unknown]
  - Nervousness [Unknown]
  - Haemorrhage [Unknown]
  - Renal artery arteriosclerosis [Unknown]
  - Discomfort [Unknown]

NARRATIVE: CASE EVENT DATE: 201112
